FAERS Safety Report 15517171 (Version 2)
Quarter: 2018Q4

REPORT INFORMATION
  Report Type: Report from Study
  Country: CZ (occurrence: CZ)
  Receive Date: 20181017
  Receipt Date: 20181102
  Transmission Date: 20190205
  Serious: Yes (Death, Hospitalization, Other)
  Sender: FDA-Public Use
  Company Number: PHHY2018CZ127832

PATIENT
  Age: 78 Year
  Sex: Female

DRUGS (9)
  1. GLIVEC [Suspect]
     Active Substance: IMATINIB MESYLATE
     Indication: CHRONIC MYELOID LEUKAEMIA
     Dosage: 400 OT, UNK
     Route: 065
     Dates: start: 20130923, end: 20131021
  2. KALNORMIN [Concomitant]
     Active Substance: POTASSIUM CHLORIDE
     Indication: PRODUCT USED FOR UNKNOWN INDICATION
     Dosage: UNK
     Route: 065
     Dates: start: 20140102
  3. GLIVEC [Suspect]
     Active Substance: IMATINIB MESYLATE
     Dosage: 200 OT, UNK
     Route: 065
     Dates: start: 20150903, end: 20151231
  4. GLIVEC [Suspect]
     Active Substance: IMATINIB MESYLATE
     Dosage: 300 OT, UNK
     Route: 065
     Dates: start: 20170704, end: 20171002
  5. GLIVEC [Suspect]
     Active Substance: IMATINIB MESYLATE
     Dosage: 200 MG, QD
     Route: 065
     Dates: start: 20171003
  6. STILNOX [Concomitant]
     Active Substance: ZOLPIDEM TARTRATE
     Indication: PRODUCT USED FOR UNKNOWN INDICATION
     Dosage: UNK
     Route: 065
     Dates: start: 20030101
  7. EUTHYROX [Concomitant]
     Active Substance: LEVOTHYROXINE SODIUM
     Indication: HYPOTHYROIDISM
     Dosage: UNK
     Route: 065
     Dates: start: 19730101
  8. GLIVEC [Suspect]
     Active Substance: IMATINIB MESYLATE
     Dosage: 300 OT, UNK
     Route: 065
     Dates: start: 20160101, end: 20170703
  9. GLIVEC [Suspect]
     Active Substance: IMATINIB MESYLATE
     Dosage: 300 OT, UNK
     Route: 065
     Dates: start: 20131022, end: 20150902

REACTIONS (10)
  - Brachiocephalic vein thrombosis [Unknown]
  - Lung neoplasm malignant [Unknown]
  - Chronic myeloid leukaemia [Fatal]
  - Malignant neoplasm progression [Fatal]
  - Squamous cell carcinoma of skin [Fatal]
  - Haematotoxicity [Unknown]
  - Gastroduodenal ulcer [Unknown]
  - Second primary malignancy [Fatal]
  - Pulmonary embolism [Unknown]
  - Spinal pain [Unknown]

NARRATIVE: CASE EVENT DATE: 20131216
